FAERS Safety Report 6194878-1 (Version None)
Quarter: 2009Q2

REPORT INFORMATION
  Report Type: 
  Country: None (occurrence: None)
  Receive Date: 20090519
  Receipt Date: 20090507
  Transmission Date: 20091009
  Serious: Yes (Other)
  Sender: FDA-Public Use
  Company Number: JP-PFIZER INC-2009211482

PATIENT
  Age: 39 Year

DRUGS (1)
  1. DALACIN [Suspect]
     Route: 042

REACTIONS (3)
  - ARTHRALGIA [None]
  - C-REACTIVE PROTEIN INCREASED [None]
  - DRUG ERUPTION [None]
